FAERS Safety Report 7628482-2 (Version None)
Quarter: 2011Q3

REPORT INFORMATION
  Report Type: 
  Country: None (occurrence: None)
  Receive Date: 20110722
  Receipt Date: 20110714
  Transmission Date: 20111222
  Serious: Yes (Hospitalization)
  Sender: FDA-Public Use
  Company Number: FI-AMGEN-FINSP2011014889

PATIENT
  Age: 81 Year
  Sex: Female

DRUGS (6)
  1. BISOPROLOL FUMARATE [Concomitant]
  2. CARDACE                            /00885601/ [Concomitant]
  3. NITRO                              /00003201/ [Concomitant]
  4. ORMOX [Concomitant]
  5. NEULASTA [Suspect]
     Indication: CHEMOTHERAPY
     Dosage: UNK
     Dates: start: 20110317
  6. FURESIS [Concomitant]

REACTIONS (7)
  - ABDOMINAL PAIN [None]
  - NAUSEA [None]
  - DIARRHOEA [None]
  - BACK PAIN [None]
  - VOMITING [None]
  - CARDIAC DISORDER [None]
  - BONE PAIN [None]
